FAERS Safety Report 22313257 (Version 1)
Quarter: 2023Q2

REPORT INFORMATION
  Report Type: Spontaneous
  Country: FR (occurrence: FR)
  Receive Date: 20230512
  Receipt Date: 20230512
  Transmission Date: 20230721
  Serious: Yes (Hospitalization, Other)
  Sender: FDA-Public Use
  Company Number: FR-RECORDATI-2023000833

PATIENT
  Age: 53 Year
  Sex: Male
  Weight: 66 kg

DRUGS (11)
  1. PANTOPRAZOLE [Suspect]
     Active Substance: PANTOPRAZOLE
     Indication: Product used for unknown indication
     Dosage: UNK
     Route: 065
     Dates: end: 20220105
  2. OSILODROSTAT [Suspect]
     Active Substance: OSILODROSTAT
     Indication: Cushing^s syndrome
     Dosage: 40 MILLIGRAM, ONCE A DAY
     Route: 048
  3. OSILODROSTAT [Suspect]
     Active Substance: OSILODROSTAT
     Dosage: 20 MILLIGRAM, ONCE A DAY(10 MILLIGRAM, BID)
     Route: 048
     Dates: start: 2021, end: 20211230
  4. OSILODROSTAT [Suspect]
     Active Substance: OSILODROSTAT
     Dosage: 50 MILLIGRAM, ONCE A DAY(25 MILLIGRAM, BID)
     Route: 048
     Dates: start: 20211120, end: 2021
  5. CYAMEMAZINE [Suspect]
     Active Substance: CYAMEMAZINE
     Indication: Product used for unknown indication
     Dosage: UNK
     Route: 065
     Dates: start: 20211124, end: 20211229
  6. BACTRIM [Concomitant]
     Active Substance: SULFAMETHOXAZOLE\TRIMETHOPRIM
     Indication: Prophylaxis
     Dosage: 400-800 MILLIGRAM
     Route: 048
     Dates: start: 20211124, end: 20211226
  7. COTRIMOXAZOLE [Concomitant]
     Active Substance: SULFAMETHOXAZOLE\TRIMETHOPRIM
     Indication: Prophylaxis
     Dosage: UNK
     Route: 065
  8. POTASSIUM CHLORIDE [Concomitant]
     Active Substance: POTASSIUM CHLORIDE
     Indication: Hypokalaemia
     Dosage: 6 GRAM
     Route: 042
  9. PROPRANOLOL [Concomitant]
     Active Substance: PROPRANOLOL HYDROCHLORIDE
     Indication: Anxiety
     Dosage: 40 MILLIGRAM
     Route: 048
     Dates: start: 20211121, end: 20211230
  10. SPIRONOLACTONE [Concomitant]
     Active Substance: SPIRONOLACTONE
     Indication: Hypokalaemia
     Dosage: 15 MILLIGRAM
     Route: 048
     Dates: start: 20211217, end: 20211224
  11. CANRENOATE POTASSIUM\TROMETHAMINE [Concomitant]
     Active Substance: CANRENOATE POTASSIUM\TROMETHAMINE
     Indication: Hypokalaemia
     Dosage: 400 MILLIGRAM, ONCE A DAY
     Route: 065

REACTIONS (3)
  - Febrile neutropenia [Recovered/Resolved]
  - Adrenal insufficiency [Unknown]
  - Anaemia [Unknown]

NARRATIVE: CASE EVENT DATE: 20210101
